FAERS Safety Report 23606625 (Version 3)
Quarter: 2024Q2

REPORT INFORMATION
  Report Type: Spontaneous
  Country: US (occurrence: US)
  Receive Date: 20240307
  Receipt Date: 20240501
  Transmission Date: 20240716
  Serious: Yes (Life-Threatening)
  Sender: FDA-Public Use
  Company Number: US-PFIZER INC-202400056841

PATIENT
  Age: 66 Year
  Sex: Female
  Weight: 89.342 kg

DRUGS (1)
  1. HYDROCORTISONE [Suspect]
     Active Substance: HYDROCORTISONE
     Indication: Addison^s disease
     Dosage: 25 MG, DAILY (25MG (10/10/5) 3X DAILY)
     Route: 048

REACTIONS (4)
  - Asthenia [Recovered/Resolved with Sequelae]
  - Addison^s disease [Recovered/Resolved with Sequelae]
  - Condition aggravated [Recovered/Resolved with Sequelae]
  - Drug effect less than expected [Unknown]
